FAERS Safety Report 5000728-9 (Version None)
Quarter: 2006Q2

REPORT INFORMATION
  Report Type: 
  Country: None (occurrence: None)
  Receive Date: 20060512
  Receipt Date: 20060503
  Transmission Date: 20061013
  Serious: Yes (Other)
  Sender: FDA-Public Use
  Company Number: PHBS2006US06703

PATIENT
  Age: 41 Year
  Sex: Female

DRUGS (5)
  1. PREDNISONE TAB [Suspect]
     Indication: RENAL TRANSPLANT
     Dosage: 15 MG/D
     Route: 065
  2. AZATHIOPRINE [Concomitant]
     Indication: RENAL TRANSPLANT
     Dosage: 200 MG/D
     Route: 065
  3. DILTIAZEM [Concomitant]
     Dosage: 800 MG/D
  4. ATENOLOL [Concomitant]
     Dosage: 50 MG/D
  5. CYCLOSPORINE [Suspect]
     Indication: RENAL TRANSPLANT
     Dosage: 250 MG/D
     Route: 065

REACTIONS (2)
  - CHORIORETINOPATHY [None]
  - RETINAL VEIN OCCLUSION [None]
